FAERS Safety Report 8854834 (Version 1)
Quarter: 2012Q4

REPORT INFORMATION
  Report Type: 
  Country: CN (occurrence: CN)
  Receive Date: 20121023
  Receipt Date: 20121023
  Transmission Date: 20130627
  Serious: Yes (Death)
  Sender: FDA-Public Use
  Company Number: PHHY2012CN093973

PATIENT
  Sex: Male

DRUGS (3)
  1. CICLOSPORIN [Suspect]
     Indication: HISTIOCYTOSIS HAEMATOPHAGIC
     Route: 048
  2. METHYLPREDNISOLONE [Suspect]
     Indication: HISTIOCYTOSIS HAEMATOPHAGIC
     Route: 048
  3. GAMMA GLOBULIN [Suspect]
     Indication: HISTIOCYTOSIS HAEMATOPHAGIC
     Route: 042

REACTIONS (3)
  - Histiocytosis haematophagic [Fatal]
  - Intracranial pressure increased [Fatal]
  - Drug ineffective [Unknown]
